FAERS Safety Report 9652569 (Version 3)
Quarter: 2013Q4

REPORT INFORMATION
  Report Type: Report from Study
  Country: US (occurrence: US)
  Receive Date: 20131029
  Receipt Date: 20131122
  Transmission Date: 20140711
  Serious: Yes (Hospitalization)
  Sender: FDA-Public Use
  Company Number: US-ACTELION-A-NJ2013-89787

PATIENT
  Age: 76 Year
  Sex: Male

DRUGS (1)
  1. TRACLEER [Suspect]
     Indication: PULMONARY ARTERIAL HYPERTENSION
     Dosage: UNK
     Route: 048
     Dates: start: 20130319, end: 20131023

REACTIONS (5)
  - Cholecystectomy [Unknown]
  - Pulmonary function test abnormal [Unknown]
  - Condition aggravated [Unknown]
  - Liver function test abnormal [Unknown]
  - No therapeutic response [Unknown]
